FAERS Safety Report 6151995-X (Version None)
Quarter: 2009Q2

REPORT INFORMATION
  Report Type: 
  Country: None (occurrence: None)
  Receive Date: 20090408
  Receipt Date: 20090325
  Transmission Date: 20091009
  Serious: Yes (Hospitalization)
  Sender: FDA-Public Use
  Company Number: 190256USA

PATIENT
  Age: 61 Year
  Sex: Male

DRUGS (11)
  1. BISOPROLOL FUMARATE [Suspect]
     Dosage: 5 MG (1 IN 1 D)
  2. METFORMIN HYDROCHLORIDE TABLET 500MG, 850MG, 1000MG (METFORMIN) [Suspect]
     Dosage: 2550 MG (1 IN 1 D)
  3. DIAZEPAM [Suspect]
     Dosage: 20 MG (1 IN 1 D)
  4. MEDROXYPROGESTERONE ACETATE TABLET 2.5MG, 5MG, 10MG (MEDROXYPROGESTERO [Suspect]
     Dosage: 100 MG (1 IN 1 D)
  5. DILAUDID [Suspect]
     Dosage: 12 MG (1 IN 1 D), 2 MG (1 IN 1 D)
  6. FLURAZEPAM [Suspect]
     Dosage: (1 IN 1 D)
  7. GLYBURIDE [Suspect]
     Dosage: 15 MG (1 IN 1 D)
  8. LIPITOR [Suspect]
     Dosage: 40 MG (1 IN 1 D)
  9. AVASTIN [Concomitant]
  10. PLATINUM CONTAINING CHEMOTHERAPY [Concomitant]
  11. .. [Concomitant]

REACTIONS (10)
  - BLOOD CREATININE INCREASED [None]
  - CONFUSIONAL STATE [None]
  - DECREASED APPETITE [None]
  - DEHYDRATION [None]
  - DRUG TOXICITY [None]
  - GLASGOW COMA SCALE ABNORMAL [None]
  - HAEMOGLOBIN DECREASED [None]
  - HYPOTENSION [None]
  - INTENTIONAL DRUG MISUSE [None]
  - MENTAL STATUS CHANGES [None]
